FAERS Safety Report 4741458-8 (Version None)
Quarter: 2005Q3

REPORT INFORMATION
  Report Type: 
  Country: None (occurrence: None)
  Receive Date: 20050808
  Receipt Date: 20050722
  Transmission Date: 20060218
  Serious: Yes (Death)
  Sender: FDA-Public Use
  Company Number: JP_050606833

PATIENT
  Age: 83 Year
  Sex: Male
  Weight: 34 kg

DRUGS (4)
  1. GEMZAR [Suspect]
     Indication: PANCREATIC CARCINOMA
     Dosage: 1200 MG OTHER
     Route: 050
     Dates: start: 20050412, end: 20050525
  2. SEROTONE (AZASETRON HYDROCHLORIDE) [Concomitant]
  3. DECADRON #1 (DEXAMETHASONE SODIUM PHOSPHATE) [Concomitant]
  4. DUROTEP (FENTANYL) [Concomitant]

REACTIONS (2)
  - BLOOD PH INCREASED [None]
  - PNEUMONITIS [None]
